FAERS Safety Report 19720791 (Version 1)
Quarter: 2021Q3

REPORT INFORMATION
  Report Type: Spontaneous
  Country: US (occurrence: US)
  Receive Date: 20210819
  Receipt Date: 20210819
  Transmission Date: 20211014
  Serious: No
  Sender: FDA-Public Use
  Company Number: None

PATIENT
  Age: 18 Year
  Sex: Male
  Weight: 113.6 kg

DRUGS (2)
  1. REGEN?COV [Suspect]
     Active Substance: CASIRIVIMAB\IMDEVIMAB
     Indication: CORONAVIRUS INFECTION
     Dosage: ?          OTHER FREQUENCY:ONCE;?
     Route: 041
     Dates: start: 20210817, end: 20210817
  2. CETIRIZINE 10 MG TABLET [Concomitant]

REACTIONS (9)
  - Flushing [None]
  - Pruritus [None]
  - Infusion related reaction [None]
  - Oral discomfort [None]
  - Lacrimation increased [None]
  - Feeling abnormal [None]
  - Erythema [None]
  - Nasal congestion [None]
  - Sneezing [None]

NARRATIVE: CASE EVENT DATE: 20210817
